FAERS Safety Report 5889464-4 (Version None)
Quarter: 2008Q3

REPORT INFORMATION
  Report Type: 
  Country: None (occurrence: None)
  Receive Date: 20080919
  Receipt Date: 20080911
  Transmission Date: 20090109
  Serious: Yes (Hospitalization)
  Sender: FDA-Public Use
  Company Number: US-BAYER-200833505NA

PATIENT
  Age: 72 Year
  Sex: Male

DRUGS (1)
  1. MAGNEVIST [Suspect]
     Indication: NUCLEAR MAGNETIC RESONANCE IMAGING
     Dates: start: 20080313, end: 20080313

REACTIONS (3)
  - ERYTHEMA [None]
  - INJECTION SITE PHLEBITIS [None]
  - SWELLING [None]
